FAERS Safety Report 4698463-X (Version None)
Quarter: 2005Q2

REPORT INFORMATION
  Report Type: 
  Country: None (occurrence: None)
  Receive Date: 20050621
  Receipt Date: 20050606
  Transmission Date: 20051028
  Serious: Yes (Death)
  Sender: FDA-Public Use
  Company Number: FR_050506501

PATIENT
  Age: 59 Year
  Sex: Female
  Weight: 50 kg

DRUGS (5)
  1. ZYPREXA [Suspect]
     Dates: start: 20050503, end: 20050503
  2. LORAZEPAM [Concomitant]
  3. STABLON (TIANEPTINE) [Concomitant]
  4. TRIMETAZIDINE [Concomitant]
  5. NEURONTIN [Concomitant]

REACTIONS (2)
  - COMPLETED SUICIDE [None]
  - OVERDOSE [None]
